FAERS Safety Report 25160881 (Version 1)
Quarter: 2025Q2

REPORT INFORMATION
  Report Type: Spontaneous
  Country: US (occurrence: US)
  Receive Date: 20250404
  Receipt Date: 20250404
  Transmission Date: 20250716
  Serious: Yes (Hospitalization, Other)
  Sender: APOTEX
  Company Number: US-APOTEX-2025AP004248

PATIENT
  Age: 14 Year
  Sex: Female

DRUGS (2)
  1. ACETAMINOPHEN [Suspect]
     Active Substance: ACETAMINOPHEN
     Indication: Product used for unknown indication
     Route: 048
  2. IRON [Suspect]
     Active Substance: IRON
     Indication: Product used for unknown indication
     Route: 048

REACTIONS (6)
  - Acute hepatic failure [Unknown]
  - Encephalopathy [Unknown]
  - Intentional product misuse [Unknown]
  - Hyperammonaemia [Unknown]
  - Coagulopathy [Unknown]
  - Toxicity to various agents [Unknown]
